FAERS Safety Report 24332068 (Version 1)
Quarter: 2024Q3

REPORT INFORMATION
  Report Type: Spontaneous
  Country: US (occurrence: US)
  Receive Date: 20240918
  Receipt Date: 20240918
  Transmission Date: 20241017
  Serious: No
  Sender: MISSION
  Company Number: US-Mission Pharmacal Company-2161729

PATIENT
  Age: 66 Year
  Sex: Male

DRUGS (6)
  1. THIOLA EC [Suspect]
     Active Substance: TIOPRONIN
     Indication: Nephrolithiasis
     Dates: start: 20240825
  2. ALLOPURINOL [Concomitant]
     Active Substance: ALLOPURINOL
  3. LOSARTAN POTASSIUM [Concomitant]
     Active Substance: LOSARTAN POTASSIUM
  4. POTASSIUM CITRATE [Concomitant]
     Active Substance: POTASSIUM CITRATE
  5. LEVOTHYROXINE SODIUM [Concomitant]
     Active Substance: LEVOTHYROXINE SODIUM
  6. ATORVASTATIN CALCIUM [Concomitant]
     Active Substance: ATORVASTATIN CALCIUM

REACTIONS (2)
  - Nausea [Unknown]
  - Dizziness [Unknown]
